FAERS Safety Report 23587740 (Version 1)
Quarter: 2024Q1

REPORT INFORMATION
  Report Type: Spontaneous
  Country: UA (occurrence: UA)
  Receive Date: 20240301
  Receipt Date: 20240301
  Transmission Date: 20240409
  Serious: Yes (Death, Other)
  Sender: FDA-Public Use
  Company Number: UA-009507513-2402UKR009063

PATIENT
  Sex: Female

DRUGS (1)
  1. KEYTRUDA [Suspect]
     Active Substance: PEMBROLIZUMAB
     Indication: Ocular melanoma
     Dosage: 200 MG

REACTIONS (2)
  - Cardiac disorder [Fatal]
  - Arthralgia [Recovering/Resolving]

NARRATIVE: CASE EVENT DATE: 20230223
